FAERS Safety Report 24238855 (Version 1)
Quarter: 2024Q3

REPORT INFORMATION
  Report Type: Spontaneous
  Country: MX (occurrence: None)
  Receive Date: 20240822
  Receipt Date: 20240822
  Transmission Date: 20241016
  Serious: Yes (Life-Threatening, Other)
  Sender: ASTRAZENECA
  Company Number: 2024A187914

PATIENT
  Age: 65 Year
  Sex: Male

DRUGS (1)
  1. DURVALUMAB [Suspect]
     Active Substance: DURVALUMAB
     Indication: Non-small cell lung cancer

REACTIONS (3)
  - Respiratory disorder [Recovered/Resolved]
  - Pseudomonas infection [Recovered/Resolved]
  - Tracheal inflammation [Recovered/Resolved]
